FAERS Safety Report 6768756-0 (Version None)
Quarter: 2010Q2

REPORT INFORMATION
  Report Type: 
  Country: None (occurrence: None)
  Receive Date: 20100614
  Receipt Date: 20100604
  Transmission Date: 20101027
  Serious: Yes (Hospitalization)
  Sender: FDA-Public Use
  Company Number: DE-ABBOTT-10P-062-0649480-00

PATIENT
  Sex: Male

DRUGS (2)
  1. HUMIRA [Suspect]
     Indication: PSORIASIS
     Route: 058
     Dates: start: 20091020, end: 20100401
  2. HUMIRA [Suspect]
     Route: 058
     Dates: start: 20100501

REACTIONS (3)
  - DENTAL OPERATION [None]
  - DIZZINESS [None]
  - EPIDIDYMITIS [None]
